FAERS Safety Report 9666085 (Version 2)
Quarter: 2013Q4

REPORT INFORMATION
  Report Type: Spontaneous
  Country: JP (occurrence: JP)
  Receive Date: 20131104
  Receipt Date: 20131119
  Transmission Date: 20140711
  Serious: Yes (Death)
  Sender: FDA-Public Use
  Company Number: JP-BAYER-2013-130051

PATIENT
  Age: 67 Year
  Sex: Male
  Weight: 71 kg

DRUGS (9)
  1. NEXAVAR [Suspect]
     Indication: HEPATOCELLULAR CARCINOMA
     Dosage: 400 MG, QD
     Route: 048
     Dates: start: 20131010, end: 20131016
  2. OXYCONTIN [Concomitant]
     Dosage: DAILY DOSE 20 MG
     Route: 048
     Dates: end: 20131016
  3. OXINORM [OXYCODONE HYDROCHLORIDE] [Concomitant]
     Dosage: UNK, PRN
     Route: 048
     Dates: end: 20131016
  4. URSO [Concomitant]
     Dosage: DAILY DOSE 600 MG
     Route: 048
     Dates: end: 20131016
  5. LIVACT [Concomitant]
     Dosage: DAILY DOSE 12.45 G
     Route: 048
     Dates: end: 20131016
  6. MYSLEE [Concomitant]
     Dosage: DAILY DOSE 10 MG
     Route: 048
     Dates: end: 20131016
  7. ALDACTONE A [Concomitant]
     Dosage: DAILY DOSE 50 MG
     Route: 048
     Dates: end: 20131016
  8. JANUVIA [Concomitant]
     Dosage: DAILY DOSE 50 MG
     Route: 048
     Dates: end: 20131016
  9. FERROMIA [Concomitant]
     Dosage: DAILY DOSE 200 MG
     Route: 048
     Dates: end: 20131016

REACTIONS (3)
  - Hepatorenal syndrome [Fatal]
  - Fall [Unknown]
  - Contusion [None]
